FAERS Safety Report 4661186-7 (Version None)
Quarter: 2005Q2

REPORT INFORMATION
  Report Type: 
  Country: None (occurrence: None)
  Receive Date: 20050513
  Receipt Date: 20050505
  Transmission Date: 20051028
  Serious: Yes (Life-Threatening, Hospitalization)
  Sender: FDA-Public Use
  Company Number: US-JNJFOC-20041202685

PATIENT
  Age: 34 Year
  Sex: Male

DRUGS (6)
  1. REMICADE [Suspect]
     Indication: ANKYLOSING SPONDYLITIS
     Route: 042
  2. REMICADE [Suspect]
     Indication: REITER'S SYNDROME
     Dosage: FIRST INFUSION
     Route: 042
  3. NEXIUM [Concomitant]
  4. DIOVAN [Concomitant]
  5. INDOCIN [Concomitant]
  6. EFFEXOR [Concomitant]

REACTIONS (1)
  - AUTOIMMUNE HEPATITIS [None]
